FAERS Safety Report 12432704 (Version 2)
Quarter: 2016Q2

REPORT INFORMATION
  Report Type: Spontaneous
  Country: CA (occurrence: CA)
  Receive Date: 20160603
  Receipt Date: 20160627
  Transmission Date: 20160815
  Serious: Yes (Other)
  Sender: FDA-Public Use
  Company Number: CA-BAYER-2016-100232

PATIENT
  Age: 49 Year
  Sex: Male

DRUGS (3)
  1. RESTORALAX [Suspect]
     Active Substance: POLYETHYLENE GLYCOL 3350
     Dosage: UNK
     Dates: start: 201602
  2. PREDNISONE. [Concomitant]
     Active Substance: PREDNISONE
  3. RESTORALAX [Suspect]
     Active Substance: POLYETHYLENE GLYCOL 3350
     Dosage: UNK
     Dates: start: 201512

REACTIONS (10)
  - Tremor [None]
  - Hyperhidrosis [None]
  - Intestinal scarring [None]
  - Chills [None]
  - Asthenia [None]
  - Dysstasia [None]
  - Intestinal obstruction [None]
  - Dizziness [None]
  - General physical health deterioration [None]
  - Muscle atrophy [None]
